FAERS Safety Report 10578423 (Version 1)
Quarter: 2014Q4

REPORT INFORMATION
  Report Type: Spontaneous
  Country: CA (occurrence: None)
  Receive Date: 20141111
  Receipt Date: 20141111
  Transmission Date: 20150529
  Serious: Yes (Other)
  Sender: FDA-Public Use
  Company Number: None

PATIENT
  Age: 61 Year
  Sex: Male
  Weight: 111.13 kg

DRUGS (2)
  1. SAPHRIS [Suspect]
     Active Substance: ASENAPINE MALEATE
     Indication: PARANOIA
     Dosage: 1 PILL AT BED TIME; ONCE DAILY; TAKEN UNDER THE TONGUE
     Route: 048
     Dates: start: 20111101, end: 20141110
  2. SAPHRIS [Suspect]
     Active Substance: ASENAPINE MALEATE
     Indication: DEPRESSION
     Dosage: 1 PILL AT BED TIME; ONCE DAILY; TAKEN UNDER THE TONGUE
     Route: 048
     Dates: start: 20111101, end: 20141110

REACTIONS (1)
  - Tongue dysplasia [None]

NARRATIVE: CASE EVENT DATE: 20141106
